FAERS Safety Report 19415606 (Version 1)
Quarter: 2021Q2

REPORT INFORMATION
  Report Type: Spontaneous
  Country: US (occurrence: US)
  Receive Date: 20210614
  Receipt Date: 20210614
  Transmission Date: 20210717
  Serious: No
  Sender: FDA-Public Use
  Company Number: US-GALDERMA-US2020030629

PATIENT
  Sex: Male

DRUGS (1)
  1. ADAPALENE GEL, 0.3% [Suspect]
     Active Substance: ADAPALENE
     Indication: PRODUCT USED FOR UNKNOWN INDICATION
     Dosage: 0.3 %
     Route: 061

REACTIONS (1)
  - Skin irritation [Unknown]
